FAERS Safety Report 7345543-6 (Version None)
Quarter: 2011Q1

REPORT INFORMATION
  Report Type: 
  Country: None (occurrence: None)
  Receive Date: 20110310
  Receipt Date: 20110308
  Transmission Date: 20110831
  Serious: Yes (Hospitalization)
  Sender: FDA-Public Use
  Company Number: MX-MERCK-1102MEX00021

PATIENT
  Age: 37 Month
  Sex: Male
  Weight: 15 kg

DRUGS (5)
  1. SINGULAIR [Suspect]
     Route: 048
     Dates: start: 20110223, end: 20110223
  2. SINGULAIR [Suspect]
     Route: 048
     Dates: start: 20110225
  3. BUDESONIDE [Concomitant]
     Indication: ASTHMA
     Route: 065
  4. SINGULAIR [Suspect]
     Indication: ASTHMA
     Route: 048
     Dates: start: 20110224, end: 20110224
  5. ALBUTEROL [Concomitant]
     Indication: ASTHMA
     Route: 065

REACTIONS (2)
  - POISONING [None]
  - OVERDOSE [None]
